FAERS Safety Report 7764672-6 (Version None)
Quarter: 2011Q3

REPORT INFORMATION
  Report Type: 
  Country: None (occurrence: None)
  Receive Date: 20110921
  Receipt Date: 20110920
  Transmission Date: 20111222
  Serious: Yes (Life-Threatening, Disabling, Other)
  Sender: FDA-Public Use
  Company Number: PHHY2010CA79944

PATIENT
  Sex: Female

DRUGS (4)
  1. ZOLEDRONOC ACID [Suspect]
     Indication: OSTEOPOROSIS
     Dosage: 5 MG, UNK
     Route: 042
     Dates: start: 20101120
  2. TYLENOL-500 [Concomitant]
  3. PREDNISONE [Concomitant]
  4. ADVIL LIQUI-GELS [Concomitant]

REACTIONS (6)
  - JOINT SWELLING [None]
  - MYALGIA [None]
  - OSTEOARTHRITIS [None]
  - FEELING ABNORMAL [None]
  - PAIN [None]
  - BODY TEMPERATURE INCREASED [None]
